FAERS Safety Report 13549603 (Version 1)
Quarter: 2017Q2

REPORT INFORMATION
  Report Type: Report from Study
  Country: BR (occurrence: BR)
  Receive Date: 20170516
  Receipt Date: 20170516
  Transmission Date: 20170830
  Serious: Yes (Hospitalization)
  Sender: FDA-Public Use
  Company Number: PHHY2017BR069862

PATIENT
  Sex: Female

DRUGS (1)
  1. SANDOSTATIN LAR DEPOT [Suspect]
     Active Substance: OCTREOTIDE ACETATE
     Indication: NEUROENDOCRINE TUMOUR
     Dosage: UNK UNK, QMO (ONCE A MONTH)
     Route: 030
     Dates: start: 201508

REACTIONS (3)
  - Pancreatic disorder [Recovering/Resolving]
  - Liver disorder [Recovering/Resolving]
  - Back pain [Recovering/Resolving]
